FAERS Safety Report 11737829 (Version 1)
Quarter: 2015Q4

REPORT INFORMATION
  Report Type: Spontaneous
  Country: FR (occurrence: FR)
  Receive Date: 20151113
  Receipt Date: 20151113
  Transmission Date: 20160304
  Serious: Yes (Hospitalization)
  Sender: FDA-Public Use
  Company Number: FR-SA-2015SA173991

PATIENT
  Age: 51 Year
  Sex: Male

DRUGS (4)
  1. PENICILLIN G [Suspect]
     Active Substance: PENICILLIN G
     Indication: ERYSIPELAS
     Route: 042
     Dates: start: 20150811, end: 20150822
  2. AUGMENTIN [Suspect]
     Active Substance: AMOXICILLIN\CLAVULANATE POTASSIUM
     Indication: ERYSIPELAS
     Route: 048
     Dates: start: 20150809, end: 20150811
  3. NUROFEN [Suspect]
     Active Substance: IBUPROFEN
     Route: 048
     Dates: start: 20150804, end: 20150808
  4. LOVENOX [Suspect]
     Active Substance: ENOXAPARIN SODIUM
     Route: 058
     Dates: start: 20150812, end: 20150820

REACTIONS (4)
  - Gastric ulcer [Unknown]
  - Melaena [Unknown]
  - Anaemia [Unknown]
  - Duodenal ulcer [Unknown]

NARRATIVE: CASE EVENT DATE: 20150814
